FAERS Safety Report 9726930 (Version 2)
Quarter: 2013Q4

REPORT INFORMATION
  Report Type: Report from Study
  Country: CN (occurrence: CN)
  Receive Date: 20131203
  Receipt Date: 20131227
  Transmission Date: 20140711
  Serious: Yes (Hospitalization, Other)
  Sender: FDA-Public Use
  Company Number: CN-ASTELLAS-2013US012436

PATIENT
  Sex: Male

DRUGS (1)
  1. ERLOTINIB TABLET [Suspect]
     Indication: NON-SMALL CELL LUNG CANCER
     Dosage: 150 MG, UID/QD
     Route: 048
     Dates: start: 20130531

REACTIONS (7)
  - Visual acuity reduced [Not Recovered/Not Resolved]
  - Muscular weakness [Unknown]
  - Vasoconstriction [Unknown]
  - Cerebral infarction [Unknown]
  - Hypoaesthesia [Not Recovered/Not Resolved]
  - Rash [Recovering/Resolving]
  - Rash pustular [Not Recovered/Not Resolved]
